FAERS Safety Report 9887963 (Version 1)
Quarter: 2014Q1

REPORT INFORMATION
  Report Type: Spontaneous
  Country: ES (occurrence: None)
  Receive Date: 20140207
  Receipt Date: 20140207
  Transmission Date: 20141002
  Serious: Yes (Other)
  Sender: FDA-Public Use
  Company Number: 2014P1000761

PATIENT
  Age: 28 Year
  Sex: 0

DRUGS (7)
  1. FLUOXETINE [Suspect]
     Indication: ACTIVITIES OF DAILY LIVING IMPAIRED
     Dates: start: 2007, end: 2008
  2. FLUOXETINE [Suspect]
     Indication: SOCIAL AVOIDANT BEHAVIOUR
     Dates: start: 2007, end: 2008
  3. FLUOXETINE [Suspect]
     Dates: start: 2007, end: 2008
  4. FLUOXETINE [Suspect]
     Dates: start: 2007, end: 2008
  5. ARIPIPRAZOLE [Suspect]
     Indication: EATING DISORDER
     Dates: start: 2008, end: 2009
  6. ARIPIPRAZOLE [Suspect]
     Indication: AFFECTIVE DISORDER
     Dates: start: 2008, end: 2009
  7. ARIPIPRAZOLE [Suspect]
     Indication: APATHY
     Dates: start: 2008, end: 2009

REACTIONS (9)
  - Ventricular tachycardia [None]
  - Electrocardiogram QT prolonged [None]
  - Ventricular hypertrophy [None]
  - Dilatation ventricular [None]
  - Atrial fibrillation [None]
  - Bundle branch block right [None]
  - Ventricular extrasystoles [None]
  - Ventricular extrasystoles [None]
  - Drug interaction [None]
